FAERS Safety Report 15291358 (Version 3)
Quarter: 2018Q3

REPORT INFORMATION
  Report Type: Report from Study
  Country: US (occurrence: US)
  Receive Date: 20180817
  Receipt Date: 20180927
  Transmission Date: 20181010
  Serious: Yes (Hospitalization)
  Sender: FDA-Public Use
  Company Number: US-BAYER-2018-150712

PATIENT
  Age: 56 Year
  Sex: Male

DRUGS (1)
  1. NEXAVAR [Suspect]
     Active Substance: SORAFENIB
     Indication: HEPATOCELLULAR CARCINOMA
     Dosage: 200 MG, BID
     Route: 048
     Dates: start: 20180802, end: 2018

REACTIONS (5)
  - Communication disorder [None]
  - Pneumonia [Not Recovered/Not Resolved]
  - Drug hypersensitivity [None]
  - Peripheral swelling [None]
  - Off label use [None]

NARRATIVE: CASE EVENT DATE: 201808
